FAERS Safety Report 25183279 (Version 1)
Quarter: 2025Q2

REPORT INFORMATION
  Report Type: Spontaneous
  Country: US (occurrence: None)
  Receive Date: 20250409
  Receipt Date: 20250409
  Transmission Date: 20250716
  Serious: No
  Sender: FDA-CTU
  Company Number: None

PATIENT
  Age: 31 Year
  Sex: Male
  Weight: 87 kg

DRUGS (1)
  1. OSELTAMIVIR [Suspect]
     Active Substance: OSELTAMIVIR
     Indication: Upper respiratory tract infection
     Dosage: 75.00 MG TWICE  DY ORAL
     Route: 048
     Dates: start: 20241122

REACTIONS (1)
  - Angioedema [None]

NARRATIVE: CASE EVENT DATE: 20241125
